FAERS Safety Report 4661870-5 (Version None)
Quarter: 2005Q2

REPORT INFORMATION
  Report Type: 
  Country: None (occurrence: None)
  Receive Date: 20050513
  Receipt Date: 20050418
  Transmission Date: 20051028
  Serious: Yes (Life-Threatening, Other)
  Sender: FDA-Public Use
  Company Number: US-MERCK-0504USA03253

PATIENT
  Age: 57 Year
  Sex: Male

DRUGS (12)
  1. ZETIA [Suspect]
     Indication: BLOOD CHOLESTEROL INCREASED
     Route: 048
     Dates: start: 20050310, end: 20050329
  2. ZETIA [Suspect]
     Indication: LIPIDS INCREASED
     Route: 048
     Dates: start: 20050310, end: 20050329
  3. NIASPAN [Concomitant]
     Route: 065
  4. ZOCOR [Concomitant]
     Route: 048
  5. TOPROL-XL [Concomitant]
     Route: 065
  6. LASIX [Concomitant]
     Route: 065
  7. HYTRIN [Concomitant]
     Route: 065
  8. CATAPRES-TTS-1 [Concomitant]
     Route: 061
  9. NORVASC [Concomitant]
     Route: 065
  10. ASPIRIN [Concomitant]
     Route: 065
  11. DIOVAN [Concomitant]
     Route: 065
  12. INSPRA [Concomitant]
     Route: 065

REACTIONS (6)
  - MOUTH ULCERATION [None]
  - ORAL PAIN [None]
  - SWOLLEN TONGUE [None]
  - URTICARIA [None]
  - URTICARIA GENERALISED [None]
  - VIRAL INFECTION [None]
